FAERS Safety Report 7263337-7 (Version None)
Quarter: 2011Q1

REPORT INFORMATION
  Report Type: 
  Country: None (occurrence: None)
  Receive Date: 20110130
  Receipt Date: 20100921
  Transmission Date: 20110831
  Serious: No
  Sender: FDA-Public Use
  Company Number: US-ABBOTT-10P-163-0673406-00

PATIENT
  Sex: Female
  Weight: 93.07 kg

DRUGS (7)
  1. METFORMIN [Concomitant]
     Indication: DIABETES MELLITUS
  2. VITAMIN WITH ZINC [Concomitant]
     Indication: VITAMIN SUPPLEMENTATION
  3. PRILOSEC [Concomitant]
     Indication: GASTROOESOPHAGEAL REFLUX DISEASE
  4. HUMIRA [Suspect]
     Indication: CROHN'S DISEASE
     Dates: start: 20100819, end: 20100819
  5. IRON SULFATETHIAMIN COMPOUND TAB [Concomitant]
     Indication: PRODUCT USED FOR UNKNOWN INDICATION
  6. HUMIRA [Suspect]
     Dates: start: 20100901, end: 20100915
  7. CELEXA [Concomitant]
     Indication: DEPRESSION

REACTIONS (1)
  - OVERDOSE [None]
